FAERS Safety Report 6826676-7 (Version None)
Quarter: 2010Q3

REPORT INFORMATION
  Report Type: 
  Country: None (occurrence: None)
  Receive Date: 20100709
  Receipt Date: 20100630
  Transmission Date: 20110219
  Serious: Yes (Other)
  Sender: FDA-Public Use
  Company Number: US-PFIZER INC-2010082641

PATIENT
  Sex: Female
  Weight: 62.132 kg

DRUGS (5)
  1. CELEBREX [Suspect]
     Indication: SHOULDER OPERATION
     Dosage: 200 MG, 2X/DAY
     Dates: end: 20100501
  2. ALLEGRA [Concomitant]
     Indication: HYPERSENSITIVITY
     Dosage: UNK
  3. RANITIDINE [Concomitant]
     Dosage: UNK
  4. PREVACID [Concomitant]
     Dosage: UNK
  5. ASPIRIN [Concomitant]
     Dosage: UNK

REACTIONS (17)
  - AMNESIA [None]
  - ARTHRALGIA [None]
  - BLOOD CHOLESTEROL [None]
  - BLOOD TRIGLYCERIDES [None]
  - BONE DISORDER [None]
  - DIARRHOEA [None]
  - DYSPHAGIA [None]
  - HEADACHE [None]
  - HOT FLUSH [None]
  - HYPERTENSION [None]
  - PHARYNGEAL ERYTHEMA [None]
  - POLYDIPSIA [None]
  - PRURITUS [None]
  - PYREXIA [None]
  - SWOLLEN TONGUE [None]
  - THROMBOSIS [None]
  - TRANSIENT ISCHAEMIC ATTACK [None]
